FAERS Safety Report 16668741 (Version 1)
Quarter: 2019Q3

REPORT INFORMATION
  Report Type: Spontaneous
  Country: US (occurrence: US)
  Receive Date: 20190619
  Receipt Date: 20190619
  Transmission Date: 20191004
  Serious: Yes (Life-Threatening, Other)
  Sender: FDA-Public Use
  Company Number: None

PATIENT
  Age: 72 Year
  Sex: Female
  Weight: 74.84 kg

DRUGS (6)
  1. AMLA [Concomitant]
  2. GRAPE SEED [Concomitant]
     Active Substance: HERBALS\VITIS VINIFERA SEED
  3. NATTO MAX [Concomitant]
  4. MULTI FOOD BASED VIM. [Concomitant]
  5. HOLLY BASIL [Concomitant]
  6. ATORVASTATIN CALCIUM. [Suspect]
     Active Substance: ATORVASTATIN CALCIUM
     Indication: BLOOD CHOLESTEROL INCREASED
     Dosage: ?          QUANTITY:90 TOT - TOTAL;?
     Route: 048
     Dates: start: 20190507

REACTIONS (3)
  - Heart rate irregular [None]
  - Migraine [None]
  - Palpitations [None]
